FAERS Safety Report 8294038-4 (Version None)
Quarter: 2012Q2

REPORT INFORMATION
  Report Type: 
  Country: None (occurrence: None)
  Receive Date: 20120418
  Receipt Date: 20120413
  Transmission Date: 20120825
  Serious: Yes (Hospitalization)
  Sender: FDA-Public Use
  Company Number: DE-PFIZER INC-2012092255

PATIENT
  Sex: Male
  Weight: 113 kg

DRUGS (12)
  1. SOMATROPIN [Suspect]
     Indication: HYPOPITUITARISM
     Dosage: 0.1 MG, 1X/DAY
     Dates: start: 20081215
  2. TRAMADOL [Concomitant]
     Dosage: 1 (UNIT NOT PROVIDED), AS NEEDED
     Dates: start: 20071105
  3. TESTOSTERONE [Concomitant]
     Dosage: 50 (UNIT NOT PROVIDED), 1X/DAY
     Dates: start: 20071105, end: 20090427
  4. NEBIDO [Concomitant]
     Dosage: 1000 MG, UNK
     Dates: start: 20090429
  5. HYDROCORTISONE [Concomitant]
     Dosage: 10 MG, 1X/DAY
     Dates: start: 20081205, end: 20090308
  6. SOMATROPIN [Suspect]
     Dosage: 0.3 MG, 1X/DAY
     Dates: start: 20090302
  7. ALLOPURINOL [Concomitant]
     Dosage: 1 UNIT NOT SPECIFIED
     Dates: start: 20071105
  8. DICLOFENAC [Concomitant]
     Dosage: UNK
     Dates: start: 20071105
  9. METOPROLOL [Concomitant]
     Dosage: 1 (UNIT NOT PROVIDED) 1X/DAY
     Dates: start: 20071105
  10. SOMATROPIN [Suspect]
     Dosage: 0.3 MG, 1X/DAY
     Dates: start: 20090303
  11. JODID [Concomitant]
     Dosage: 200 UNIT NOT PROVIDED, 1X/DAY
     Dates: start: 20071105
  12. SOMATROPIN [Suspect]
     Dosage: 0.15 MG, 1X/DAY
     Dates: start: 20100419

REACTIONS (1)
  - SLEEP DISORDER [None]
